FAERS Safety Report 11323368 (Version 1)
Quarter: 2015Q3

REPORT INFORMATION
  Report Type: Spontaneous
  Country: US (occurrence: None)
  Receive Date: 20150729
  Receipt Date: 20150729
  Transmission Date: 20151125
  Serious: Yes (Hospitalization)
  Sender: FDA-Public Use
  Company Number: None

PATIENT
  Age: 67 Year
  Sex: Female
  Weight: 130.64 kg

DRUGS (21)
  1. TRILIPIX [Concomitant]
     Active Substance: FENOFIBRIC ACID
  2. NEXIUM [Concomitant]
     Active Substance: ESOMEPRAZOLE MAGNESIUM
  3. TRAVATAN [Concomitant]
     Active Substance: TRAVOPROST
  4. OXYCODONE [Concomitant]
     Active Substance: OXYCODONE
  5. LYRICA [Concomitant]
     Active Substance: PREGABALIN
  6. MAGNESIUM CITRATE. [Concomitant]
     Active Substance: MAGNESIUM CITRATE
  7. CYMBALTA [Concomitant]
     Active Substance: DULOXETINE HYDROCHLORIDE
  8. CELLCEPT [Concomitant]
     Active Substance: MYCOPHENOLATE MOFETIL\MYCOPHENOLATE MOFETIL HYDROCHLORIDE
  9. CHLORTHIADONE [Concomitant]
  10. SIMVASTATIN. [Concomitant]
     Active Substance: SIMVASTATIN
  11. MISOPROSTOL. [Concomitant]
     Active Substance: MISOPROSTOL
  12. VIT. B12 [Concomitant]
  13. IBUPROPHEN [Concomitant]
     Active Substance: IBUPROFEN
  14. MAXIPIME [Suspect]
     Active Substance: CEFEPIME HYDROCHLORIDE
     Indication: URINARY TRACT INFECTION PSEUDOMONAL
     Dosage: INTO A VEIN
     Dates: start: 20150724, end: 20150725
  15. LAMICTIL [Concomitant]
  16. LEVOTHYROXINE. [Concomitant]
     Active Substance: LEVOTHYROXINE
  17. MESTINON [Concomitant]
     Active Substance: PYRIDOSTIGMINE BROMIDE
  18. PREDNISONE. [Concomitant]
     Active Substance: PREDNISONE
  19. ASMANEX [Concomitant]
     Active Substance: MOMETASONE FUROATE
  20. NAMENDA [Concomitant]
     Active Substance: MEMANTINE HYDROCHLORIDE
  21. POTASSIUM [Concomitant]
     Active Substance: POTASSIUM

REACTIONS (7)
  - Paranoia [None]
  - Mental status changes [None]
  - Confusional state [None]
  - Hallucination [None]
  - Somnolence [None]
  - Dysarthria [None]
  - Delusion [None]

NARRATIVE: CASE EVENT DATE: 20150724
